FAERS Safety Report 15601379 (Version 1)
Quarter: 2018Q4

REPORT INFORMATION
  Report Type: Spontaneous
  Country: FR (occurrence: FR)
  Receive Date: 20181109
  Receipt Date: 20181109
  Transmission Date: 20190205
  Serious: Yes (Other)
  Sender: FDA-Public Use
  Company Number: FR-MYLANLABS-2018M1082301

PATIENT
  Age: 75 Year
  Sex: Female

DRUGS (1)
  1. ENALAPRIL [Suspect]
     Active Substance: ENALAPRIL
     Indication: PRODUCT USED FOR UNKNOWN INDICATION
     Dosage: INTRODUCED SEVERAL YEARS BEFORE
     Route: 065

REACTIONS (2)
  - Angioedema [Unknown]
  - Acquired C1 inhibitor deficiency [Unknown]
